FAERS Safety Report 14273031 (Version 11)
Quarter: 2022Q1

REPORT INFORMATION
  Report Type: Spontaneous
  Country: ES (occurrence: ES)
  Receive Date: 20171212
  Receipt Date: 20220309
  Transmission Date: 20220423
  Serious: Yes (Disabling, Other)
  Sender: FDA-Public Use
  Company Number: ES-SA-2017SA229527

PATIENT
  Age: 49 Year
  Sex: Male
  Weight: 70 kg

DRUGS (18)
  1. RIBAVIRIN [Suspect]
     Active Substance: RIBAVIRIN
     Indication: Chronic hepatitis C
     Dosage: UNKNOWN
     Route: 065
     Dates: start: 20150501, end: 2015
  2. RIBAVIRIN [Suspect]
     Active Substance: RIBAVIRIN
     Indication: HIV infection
  3. SIMEPREVIR [Suspect]
     Active Substance: SIMEPREVIR
     Indication: Chronic hepatitis C
     Dosage: UNKNOWN
     Route: 065
     Dates: start: 20150501
  4. SIMEPREVIR [Suspect]
     Active Substance: SIMEPREVIR
     Indication: HIV infection
  5. REBETOL [Suspect]
     Active Substance: RIBAVIRIN
     Indication: Chronic hepatitis C
     Dosage: UNK
     Route: 048
     Dates: start: 2015, end: 2015
  6. REBETOL [Suspect]
     Active Substance: RIBAVIRIN
     Indication: HIV infection
     Dosage: 1000MG, Q24H
     Route: 048
     Dates: start: 20150505, end: 20150727
  7. SOVALDI [Suspect]
     Active Substance: SOFOSBUVIR
     Indication: Chronic hepatitis C
     Dosage: UNK
     Route: 065
     Dates: start: 201505, end: 2015
  8. SOVALDI [Suspect]
     Active Substance: SOFOSBUVIR
     Indication: HIV infection
  9. SOFOSBUVIR [Suspect]
     Active Substance: SOFOSBUVIR
     Indication: Chronic hepatitis C
     Dosage: UNK
     Route: 065
     Dates: start: 20150501
  10. ETRAVIRINE [Concomitant]
     Active Substance: ETRAVIRINE
     Indication: Chronic hepatitis C
     Dosage: UNKNOWN
     Route: 065
  11. ETRAVIRINE [Concomitant]
     Active Substance: ETRAVIRINE
     Indication: HIV infection
  12. LAMIVUDINE [Concomitant]
     Active Substance: LAMIVUDINE
     Indication: Chronic hepatitis C
     Dosage: UNKNOWN
     Route: 065
  13. LAMIVUDINE [Concomitant]
     Active Substance: LAMIVUDINE
     Indication: HIV infection
  14. ABACAVIR [Concomitant]
     Active Substance: ABACAVIR
     Indication: Chronic hepatitis C
     Dosage: UNKNOWN
     Route: 065
  15. ABACAVIR [Concomitant]
     Active Substance: ABACAVIR
     Indication: HIV infection
  16. RALTEGRAVIR [Concomitant]
     Active Substance: RALTEGRAVIR
     Indication: Product used for unknown indication
     Dosage: UNK
     Route: 065
  17. RALTEGRAVIR [Concomitant]
     Active Substance: RALTEGRAVIR
     Indication: HIV infection
  18. LEDIPASVIR\SOFOSBUVIR [Concomitant]
     Active Substance: LEDIPASVIR\SOFOSBUVIR
     Indication: Chronic hepatitis C
     Dosage: UNK
     Route: 065

REACTIONS (4)
  - Choroiditis [Recovered/Resolved]
  - Visual acuity reduced [Recovered/Resolved]
  - Disease progression [Recovered/Resolved]
  - Blindness [Recovering/Resolving]

NARRATIVE: CASE EVENT DATE: 20150701
